FAERS Safety Report 14110688 (Version 1)
Quarter: 2017Q4

REPORT INFORMATION
  Report Type: Report from Study
  Country: NL (occurrence: NL)
  Receive Date: 20171020
  Receipt Date: 20171020
  Transmission Date: 20180321
  Serious: Yes (Death, Life-Threatening)
  Sender: FDA-Public Use
  Company Number: PHHY2017NL120590

PATIENT
  Age: 87 Year
  Sex: Male

DRUGS (1)
  1. SANDOSTATIN LAR DEPOT [Suspect]
     Active Substance: OCTREOTIDE ACETATE
     Indication: NEUROENDOCRINE TUMOUR
     Dosage: 30 MG/2ML, QMO
     Route: 030
     Dates: start: 20140721

REACTIONS (2)
  - Death [Fatal]
  - Terminal state [Unknown]

NARRATIVE: CASE EVENT DATE: 20170815
